FAERS Safety Report 26202585 (Version 1)
Quarter: 2025Q4

REPORT INFORMATION
  Report Type: Spontaneous
  Country: EU (occurrence: EU)
  Receive Date: 20251226
  Receipt Date: 20251226
  Transmission Date: 20260118
  Serious: Yes (Life-Threatening)
  Sender: AUROBINDO
  Company Number: EU-AEMPS-1798663

PATIENT
  Age: 58 Year
  Sex: Female

DRUGS (1)
  1. PIPERACILLIN SODIUM\TAZOBACTAM SODIUM [Suspect]
     Active Substance: PIPERACILLIN SODIUM\TAZOBACTAM SODIUM
     Indication: Pneumonia
     Dosage: 12 G EN PC IV
     Dates: start: 20251203, end: 20251205

REACTIONS (1)
  - Plateletcrit decreased [Recovered/Resolved]

NARRATIVE: CASE EVENT DATE: 20251204
